FAERS Safety Report 15361861 (Version 2)
Quarter: 2018Q3

REPORT INFORMATION
  Report Type: Spontaneous
  Country: CO (occurrence: CO)
  Receive Date: 20180907
  Receipt Date: 20180914
  Transmission Date: 20181010
  Serious: Yes (Death, Other)
  Sender: FDA-Public Use
  Company Number: CO-009507513-1809COL000250

PATIENT
  Age: 60 Year
  Sex: Male

DRUGS (1)
  1. ISENTRESS [Suspect]
     Active Substance: RALTEGRAVIR POTASSIUM
     Indication: ANTIRETROVIRAL THERAPY
     Dosage: 40MG TABLET X 60
     Route: 048
     Dates: start: 2015

REACTIONS (2)
  - Myocardial infarction [Fatal]
  - Product physical issue [Unknown]

NARRATIVE: CASE EVENT DATE: 201805
